FAERS Safety Report 25818559 (Version 2)
Quarter: 2025Q3

REPORT INFORMATION
  Report Type: Spontaneous
  Country: CN (occurrence: CN)
  Receive Date: 20250918
  Receipt Date: 20250923
  Transmission Date: 20251020
  Serious: Yes (Hospitalization, Other)
  Sender: PFIZER
  Company Number: CN-MLMSERVICE-20250908-PI639640-00270-1

PATIENT
  Age: 70 Year
  Sex: Male

DRUGS (3)
  1. METHYLPREDNISOLONE SODIUM SUCCINATE [Suspect]
     Active Substance: METHYLPREDNISOLONE SODIUM SUCCINATE
     Indication: Immunoglobulin G4 related disease
     Dosage: 80 MG, 1X/DAY (IVGTT, INDUCTION)
     Route: 042
     Dates: start: 202301, end: 20230117
  2. PREDNISOLONE SODIUM SUCCINATE [Suspect]
     Active Substance: PREDNISOLONE SODIUM SUCCINATE
     Indication: Immunoglobulin G4 related disease
     Dosage: 80 MG, 1X/DAY (IVGTT, MAINTENANCE)
     Route: 042
     Dates: start: 20230117, end: 202308
  3. MYCOPHENOLATE MOFETIL [Suspect]
     Active Substance: MYCOPHENOLATE MOFETIL
     Indication: Immunoglobulin G4 related disease
     Dosage: 40 MG, 3X/DAY (MAINTENANCE)
     Route: 048
     Dates: start: 20230117, end: 202308

REACTIONS (3)
  - Soft tissue infection [Unknown]
  - Localised infection [Unknown]
  - Off label use [Unknown]

NARRATIVE: CASE EVENT DATE: 20230101
